FAERS Safety Report 19700426 (Version 2)
Quarter: 2021Q3

REPORT INFORMATION
  Report Type: Spontaneous
  Country: BR (occurrence: BR)
  Receive Date: 20210813
  Receipt Date: 20210909
  Transmission Date: 20211014
  Serious: Yes (Hospitalization)
  Sender: FDA-Public Use
  Company Number: BR-ELI_LILLY_AND_COMPANY-BR202108003127

PATIENT
  Sex: Male

DRUGS (8)
  1. BETAISTINA [Concomitant]
     Active Substance: BETAHISTINE HYDROCHLORIDE
     Dosage: UNK, UNKNOWN
  2. GLIFAGE XR [Concomitant]
     Active Substance: METFORMIN HYDROCHLORIDE
     Dosage: UNK, UNKNOWN
  3. TALTZ [Suspect]
     Active Substance: IXEKIZUMAB
     Indication: ANKYLOSING SPONDYLITIS
     Dosage: 80 MG, UNKNOWN
     Route: 065
     Dates: start: 202107
  4. MECLIN [Concomitant]
     Dosage: UNK, UNKNOWN
  5. PREDSIM [Concomitant]
     Active Substance: PREDNISOLONE
     Dosage: UNK, UNKNOWN
  6. ABLOK [Concomitant]
     Active Substance: ATENOLOL
     Dosage: UNK, UNKNOWN
  7. ETNA [CYTIDINE PHOSPHATE SODIUM;HYDROXOCOBALA [Concomitant]
     Dosage: UNK, UNKNOWN
  8. MACRODANTIN [Concomitant]
     Active Substance: NITROFURANTOIN
     Dosage: UNK, UNKNOWN

REACTIONS (2)
  - Deep vein thrombosis [Unknown]
  - Cellulitis [Unknown]
